FAERS Safety Report 4375786-5 (Version None)
Quarter: 2004Q2

REPORT INFORMATION
  Report Type: 
  Country: None (occurrence: None)
  Receive Date: 20040611
  Receipt Date: 20040528
  Transmission Date: 20050107
  Serious: Yes (Hospitalization, Other)
  Sender: FDA-Public Use
  Company Number: PHBS2004CH07015

PATIENT
  Age: 58 Year
  Sex: Female

DRUGS (7)
  1. TEGRETOL [Suspect]
     Indication: PAIN
     Dosage: 600 MG/DAY
     Route: 065
  2. SANDIMMUNE [Suspect]
     Indication: RENAL TRANSPLANT
     Dosage: 300 MG/DAY
     Route: 065
     Dates: start: 20020218
  3. MYFORTIC [Suspect]
     Indication: RENAL TRANSPLANT
     Dosage: 1440 MG/DAY
     Route: 065
     Dates: start: 20020218
  4. ZELMAC [Suspect]
     Dosage: 12 MG/DAY
     Route: 065
  5. FOSAMAX [Suspect]
     Indication: OSTEOPOROSIS
     Dosage: 70 MG, QW
     Route: 065
  6. CALCIMAGON-D3 [Suspect]
     Route: 065
  7. BENEFIBER [Concomitant]
     Dosage: 3 SPOONS/DAY
     Route: 065

REACTIONS (2)
  - DEHYDRATION [None]
  - DIARRHOEA [None]
